FAERS Safety Report 7678210-X (Version None)
Quarter: 2011Q3

REPORT INFORMATION
  Report Type: 
  Country: None (occurrence: None)
  Receive Date: 20110811
  Receipt Date: 20110808
  Transmission Date: 20111222
  Serious: Yes (Death, Hospitalization, Other)
  Sender: FDA-Public Use
  Company Number: US-ELI_LILLY_AND_COMPANY-US201005000547

PATIENT
  Age: 55 Year
  Sex: Male

DRUGS (4)
  1. LIPITOR [Concomitant]
  2. VITAMINS-MINERALS THERAPEUTIC [Concomitant]
  3. BYETTA [Suspect]
     Dosage: UNK
     Dates: start: 20051001
  4. COUMADIN [Concomitant]
     Indication: THROMBOSIS

REACTIONS (5)
  - RENAL FAILURE [None]
  - PANCREATITIS NECROTISING [None]
  - CHOLELITHIASIS [None]
  - OFF LABEL USE [None]
  - PANCREATITIS ACUTE [None]
